FAERS Safety Report 18494939 (Version 1)
Quarter: 2020Q4

REPORT INFORMATION
  Report Type: Spontaneous
  Country: CN (occurrence: CN)
  Receive Date: 20201112
  Receipt Date: 20201112
  Transmission Date: 20210114
  Serious: Yes (Other)
  Sender: FDA-Public Use
  Company Number: CN-SUN PHARMACEUTICAL INDUSTRIES LTD-2020R1-267301

PATIENT
  Age: 20 Year
  Sex: Female

DRUGS (3)
  1. DEXAMETHASONE. [Suspect]
     Active Substance: DEXAMETHASONE
     Indication: DIFFERENTIATION SYNDROME
     Dosage: UNK
     Route: 065
  2. HYDROXYUREA. [Suspect]
     Active Substance: HYDROXYUREA
     Indication: DIFFERENTIATION SYNDROME
     Dosage: UNK
     Route: 065
  3. ATRA [Suspect]
     Active Substance: TRETINOIN
     Indication: DIFFERENTIATION SYNDROME
     Dosage: UNK
     Route: 065

REACTIONS (3)
  - Exposure during pregnancy [Unknown]
  - Oligohydramnios [Recovering/Resolving]
  - Premature delivery [Unknown]
